FAERS Safety Report 16240245 (Version 1)
Quarter: 2019Q2

REPORT INFORMATION
  Report Type: Spontaneous
  Country: US (occurrence: US)
  Receive Date: 20190425
  Receipt Date: 20190425
  Transmission Date: 20190711
  Serious: No
  Sender: FDA-Public Use
  Company Number: US-BAYER-2019-081463

PATIENT
  Age: 47 Year
  Sex: Male
  Weight: 99.8 kg

DRUGS (4)
  1. OXYCONTIN [Suspect]
     Active Substance: OXYCODONE HYDROCHLORIDE
  2. LYRICA [Suspect]
     Active Substance: PREGABALIN
     Dosage: 100 MG, QID
  3. ALEVE [Suspect]
     Active Substance: NAPROXEN SODIUM
  4. FENTANYL. [Suspect]
     Active Substance: FENTANYL

REACTIONS (1)
  - Drug ineffective [Unknown]
